FAERS Safety Report 4285940-9 (Version None)
Quarter: 2004Q1

REPORT INFORMATION
  Report Type: 
  Country: None (occurrence: None)
  Receive Date: 20040203
  Receipt Date: 20040123
  Transmission Date: 20041129
  Serious: Yes (Death, Other)
  Sender: FDA-Public Use
  Company Number: 2003US005587

PATIENT
  Age: 6 Year
  Sex: Female

DRUGS (16)
  1. AMBISOME [Suspect]
     Indication: PNEUMONIA ASPERGILLUS
     Dosage: 5.8 MG/KG,UID/QD, INTRAVENOUS
     Route: 042
     Dates: start: 20030818, end: 20030827
  2. CASPOFUNGIN (CASPOFUNGIN) [Concomitant]
  3. EUSAPRIM (TRIMETHOPRIM, SULFAMETHOXAZOLE) [Concomitant]
  4. SYNERCID [Concomitant]
  5. BIKLIN (AMIKACIN SULFATE) [Concomitant]
  6. CLARITHROMYCIN [Concomitant]
  7. CIPROFLOXACIN [Concomitant]
  8. FUROSEMIDE [Concomitant]
  9. SOLU-DACORTIN (PREDNISONE SODIUM SUCCINATE) [Concomitant]
  10. RANITIDINE [Concomitant]
  11. PARACETAMOL [Concomitant]
  12. KETANEST (KETAMINE) [Concomitant]
  13. FENTANYL [Concomitant]
  14. MIDAZOLAM (MIDAZOLAM) [Concomitant]
  15. DOPAMINE HCL [Concomitant]
  16. VORICONAZOLE (VORICONAZOLE) [Concomitant]

REACTIONS (6)
  - ACUTE RESPIRATORY DISTRESS SYNDROME [None]
  - BLOOD CREATININE DECREASED [None]
  - BRADYCARDIA [None]
  - CARDIAC ARREST [None]
  - HYPERKALAEMIA [None]
  - HYPOKALAEMIA [None]
